FAERS Safety Report 6782066-7 (Version None)
Quarter: 2010Q2

REPORT INFORMATION
  Report Type: 
  Country: None (occurrence: None)
  Receive Date: 20100621
  Receipt Date: 20100611
  Transmission Date: 20101027
  Serious: Yes (Other)
  Sender: FDA-Public Use
  Company Number: B0660137A

PATIENT
  Age: 67 Year
  Sex: Female
  Weight: 63.5 kg

DRUGS (6)
  1. ROPINIROLE [Suspect]
     Indication: PARKINSON'S DISEASE
     Route: 048
     Dates: start: 20091101
  2. AMITRIPTYLINE [Concomitant]
     Indication: INSOMNIA
     Route: 048
  3. DOMPERIDONE [Concomitant]
     Indication: NAUSEA
     Route: 048
     Dates: start: 20091101
  4. SALBUTAMOL [Concomitant]
     Route: 055
  5. SERETIDE [Concomitant]
     Dosage: 4IUAX PER DAY
     Route: 055
  6. CO-DYDRAMOL [Concomitant]
     Route: 048

REACTIONS (2)
  - INJURY [None]
  - SOMNAMBULISM [None]
